FAERS Safety Report 9120513 (Version 1)
Quarter: 2013Q1

REPORT INFORMATION
  Report Type: Report from Study
  Country: ES (occurrence: ES)
  Receive Date: 20130226
  Receipt Date: 20130226
  Transmission Date: 20140127
  Serious: Yes (Other)
  Sender: FDA-Public Use
  Company Number: ES-ROCHE-1194126

PATIENT
  Sex: 0

DRUGS (7)
  1. MYCOPHENOLATE MOFETIL [Suspect]
     Indication: PROPHYLAXIS AGAINST TRANSPLANT REJECTION
     Route: 048
  2. DACLIZUMAB [Concomitant]
     Indication: PROPHYLAXIS AGAINST TRANSPLANT REJECTION
     Dosage: TOTAL OF 2 DOSE ON DAY 0 (OF STUDY) AND DAY 14
     Route: 065
  3. TACROLIMUS [Concomitant]
     Indication: PROPHYLAXIS AGAINST TRANSPLANT REJECTION
     Dosage: INITIAL DOSE (BETWEEN DAY 5 AND DAY 7) AFTER TRANSPLANTATION
     Route: 065
  4. METHYLPREDNISOLONE [Concomitant]
     Indication: PROPHYLAXIS AGAINST TRANSPLANT REJECTION
     Route: 065
  5. METHYLPREDNISOLONE [Concomitant]
     Dosage: DAY 1
     Route: 042
  6. METHYLPREDNISOLONE [Concomitant]
     Dosage: DAY 2 TO 14
     Route: 042
  7. METHYLPREDNISOLONE [Concomitant]
     Dosage: DAY15 TO 30
     Route: 042

REACTIONS (2)
  - Gastrointestinal toxicity [Unknown]
  - Leukopenia [Unknown]
